FAERS Safety Report 6314710-2 (Version None)
Quarter: 2009Q3

REPORT INFORMATION
  Report Type: 
  Country: None (occurrence: None)
  Receive Date: 20090819
  Receipt Date: 20090813
  Transmission Date: 20100115
  Serious: Yes (Other)
  Sender: FDA-Public Use
  Company Number: CN-ASTRAZENECA-2009SE07979

PATIENT
  Age: 7 Year
  Sex: Male
  Weight: 21 kg

DRUGS (3)
  1. PROPOFOL [Suspect]
     Indication: ANAESTHESIA
     Route: 042
  2. PROPOFOL [Suspect]
     Route: 042
  3. PANCURONIUM BROMIDE [Concomitant]
     Indication: ANAESTHESIA

REACTIONS (2)
  - BLOOD PRESSURE DECREASED [None]
  - LARYNGEAL OEDEMA [None]
